FAERS Safety Report 12951619 (Version 1)
Quarter: 2016Q4

REPORT INFORMATION
  Report Type: Spontaneous
  Country: US (occurrence: US)
  Receive Date: 20161117
  Receipt Date: 20161117
  Transmission Date: 20170207
  Serious: Yes (Other)
  Sender: FDA-Public Use
  Company Number: US-NOVOPROD-472267

PATIENT
  Age: 39 Year
  Sex: Female
  Weight: 57.14 kg

DRUGS (3)
  1. NOVOLOG [Suspect]
     Active Substance: INSULIN ASPART
     Dosage: SLIDING SCALE - 1 U FOR EVERY 21 OR 22 CARBOHYDRATES
     Route: 058
     Dates: start: 2013
  2. TOUJEO [Concomitant]
     Active Substance: INSULIN GLARGINE
     Indication: TYPE 1 DIABETES MELLITUS
     Dosage: UNK
     Route: 058
  3. NOVOLOG [Suspect]
     Active Substance: INSULIN ASPART
     Indication: TYPE 1 DIABETES MELLITUS
     Dosage: SLIDING SCALE - 1 U FOR EVERY 12 CARBOHYDRATES
     Route: 058
     Dates: start: 2013

REACTIONS (1)
  - Hypoglycaemic unconsciousness [Not Recovered/Not Resolved]

NARRATIVE: CASE EVENT DATE: 201503
